FAERS Safety Report 4600681-3 (Version None)
Quarter: 2005Q1

REPORT INFORMATION
  Report Type: 
  Country: None (occurrence: None)
  Receive Date: 20050127
  Receipt Date: 20041108
  Transmission Date: 20050727
  Serious: No
  Sender: FDA-Public Use
  Company Number: USA041183567

PATIENT
  Age: 11 Year
  Sex: Male

DRUGS (2)
  1. STRATTERA [Suspect]
     Indication: ATTENTION DEFICIT/HYPERACTIVITY DISORDER
     Dosage: 25 MG
     Dates: start: 20040901, end: 20041104
  2. STRATTERA [Suspect]
     Indication: MENTAL DISORDER
     Dosage: 25 MG
     Dates: start: 20040901, end: 20041104

REACTIONS (9)
  - ABNORMAL DREAMS [None]
  - ANXIETY [None]
  - EDUCATIONAL PROBLEM [None]
  - FEAR [None]
  - HALLUCINATION, AUDITORY [None]
  - HALLUCINATION, VISUAL [None]
  - NIGHTMARE [None]
  - SOCIAL AVOIDANT BEHAVIOUR [None]
  - STRESS [None]
